FAERS Safety Report 7065075-2 (Version None)
Quarter: 2010Q4

REPORT INFORMATION
  Report Type: 
  Country: None (occurrence: None)
  Receive Date: 20101027
  Receipt Date: 20101021
  Transmission Date: 20110411
  Serious: Yes (Hospitalization, Other)
  Sender: FDA-Public Use
  Company Number: US-ALLERGAN-0806926US

PATIENT
  Age: 31 Year
  Sex: Female
  Weight: 52.154 kg

DRUGS (5)
  1. BOTOX [Suspect]
     Indication: THORACIC OUTLET SYNDROME
     Dosage: 240 UNITS, SINGLE
     Route: 030
     Dates: start: 20080602, end: 20080602
  2. BOTOX [Suspect]
     Indication: TORTICOLLIS
  3. ACETAMINOPHEN [Concomitant]
     Dosage: UNK, PRN
  4. MULTI-VITAMIN [Concomitant]
  5. ROBAXIN [Concomitant]

REACTIONS (10)
  - ASTHENIA [None]
  - FATIGUE [None]
  - HEMIPARESIS [None]
  - IATROGENIC INJURY [None]
  - INJECTION SITE PAIN [None]
  - MALAISE [None]
  - MUSCULAR WEAKNESS [None]
  - MYALGIA [None]
  - PNEUMOTHORAX [None]
  - THERAPEUTIC RESPONSE DECREASED [None]
